FAERS Safety Report 5271892-1 (Version None)
Quarter: 2007Q1

REPORT INFORMATION
  Report Type: 
  Country: None (occurrence: None)
  Receive Date: 20070316
  Receipt Date: 20070305
  Transmission Date: 20070707
  Serious: Yes (Other)
  Sender: FDA-Public Use
  Company Number: GXKR2007AU02268

PATIENT
  Age: 51 Year
  Sex: Female

DRUGS (2)
  1. OMEPRAZOLE [Suspect]
     Dosage: 20 MG, BID,
  2. ESOMEPRAZOLE (ESOMEPRAZOLE) [Suspect]

REACTIONS (6)
  - BARRETT'S OESOPHAGUS [None]
  - HYPOCALCAEMIA [None]
  - HYPOMAGNESAEMIA [None]
  - HYPOPARATHYROIDISM [None]
  - MUSCLE SPASMS [None]
  - TETANY [None]
